FAERS Safety Report 8482989-7 (Version None)
Quarter: 2012Q3

REPORT INFORMATION
  Report Type: 
  Country: None (occurrence: None)
  Receive Date: 20120702
  Receipt Date: 20120622
  Transmission Date: 20120928
  Serious: Yes (Hospitalization)
  Sender: FDA-Public Use
  Company Number: ES-ABBOTT-12P-144-0949825-01

PATIENT
  Age: 43 Year
  Sex: Male

DRUGS (7)
  1. HUMIRA [Suspect]
     Route: 058
  2. HUMIRA [Suspect]
     Dosage: 160MG (BASELINE)
     Route: 058
  3. HUMIRA [Suspect]
     Dosage: 80MG (WEEK 2)
     Route: 058
  4. AZATHIOPRINE [Concomitant]
     Indication: CROHN'S DISEASE
  5. OMEPRAZOLE [Concomitant]
     Indication: DYSPEPSIA
  6. HUMIRA [Suspect]
     Indication: CROHN'S DISEASE
     Route: 058
     Dates: start: 20060301
  7. CALCIUM CARBONATE [Concomitant]
     Indication: MINERAL SUPPLEMENTATION

REACTIONS (2)
  - ARACHNOID CYST [None]
  - HEADACHE [None]
